FAERS Safety Report 4881265-9 (Version None)
Quarter: 2005Q4

REPORT INFORMATION
  Report Type: 
  Country: None (occurrence: None)
  Receive Date: 20051201
  Receipt Date: 20050729
  Transmission Date: 20060501
  Serious: No
  Sender: FDA-Public Use
  Company Number: 2005PV000674

PATIENT
  Age: 74 Year
  Sex: Female
  Weight: 92.9874 kg

DRUGS (19)
  1. BYETTA [Suspect]
     Indication: DIABETES MELLITUS NON-INSULIN-DEPENDENT
     Dosage: 5 MCG;BID;SC
     Route: 058
     Dates: start: 20050728
  2. PROTONIX [Concomitant]
  3. ESTROGEN NOS [Concomitant]
  4. MEDROXYPROGESTERONE [Concomitant]
  5. AVANDAMET [Concomitant]
  6. VERAPAMIL ER [Concomitant]
  7. SINGULAIR [Concomitant]
  8. CRESTOR [Concomitant]
  9. ISOSORBIDE [Concomitant]
  10. METHOTREXATE [Concomitant]
  11. FOLIC ACID [Concomitant]
  12. ZYRTEC [Concomitant]
  13. CELEBREX [Concomitant]
  14. ASPIRIN [Concomitant]
  15. PLAVIX [Concomitant]
  16. SPIRONOLACTONE [Concomitant]
  17. LASIX [Concomitant]
  18. WALLERDRYL [Concomitant]
  19. B12 [Concomitant]

REACTIONS (5)
  - BLOOD GLUCOSE INCREASED [None]
  - ERUCTATION [None]
  - INSOMNIA [None]
  - MALAISE [None]
  - NAUSEA [None]
